FAERS Safety Report 17667331 (Version 1)
Quarter: 2020Q2

REPORT INFORMATION
  Report Type: Spontaneous
  Country: DE (occurrence: DE)
  Receive Date: 20200414
  Receipt Date: 20200414
  Transmission Date: 20200713
  Serious: Yes (Other)
  Sender: FDA-Public Use
  Company Number: DE-MYLANLABS-2020M1037334

PATIENT
  Age: 81 Year
  Sex: Male

DRUGS (15)
  1. RITUXIMAB. [Suspect]
     Active Substance: RITUXIMAB
     Dosage: 4 COURSES OF MODIFIED R-CHOP IN 75% DOSE REDUCTION
     Route: 065
  2. VINCRISTINE [Suspect]
     Active Substance: VINCRISTINE
     Dosage: (1,4 MG/M2),ANOTHER COURSE OF MODIFIED R-CHOP 100%DOSING
     Route: 065
  3. DOXORUBICIN [Suspect]
     Active Substance: DOXORUBICIN
     Dosage: 4 COURSES OF MODIFIED R-CHOP IN 75 % DOSE REDUCTION   UNK
     Route: 065
  4. ENDOXAN                            /00021101/ [Suspect]
     Active Substance: CYCLOPHOSPHAMIDE
     Dosage: ANOTHER COURSE OF MODIFIED R-CHOP IN 100 % DOSING
     Route: 065
  5. DOXORUBICIN [Suspect]
     Active Substance: DOXORUBICIN
     Dosage: ANOTHER COURSE OF MODIFIED R-CHOP IN 100 % DOSING
     Route: 065
  6. ENDOXAN                            /00021101/ [Suspect]
     Active Substance: CYCLOPHOSPHAMIDE
     Indication: DIFFUSE LARGE B-CELL LYMPHOMA
     Dosage: MODIFIED R-CHOP IN MONTHLY INTERVALS
     Route: 065
  7. DOXORUBICIN [Suspect]
     Active Substance: DOXORUBICIN
     Indication: DIFFUSE LARGE B-CELL LYMPHOMA
     Dosage: MODIFIED R-CHOP IN MONTHLY INTERVALS
     Route: 065
  8. RITUXIMAB. [Suspect]
     Active Substance: RITUXIMAB
     Indication: DIFFUSE LARGE B-CELL LYMPHOMA
     Dosage: 1 CYCLE OF A MAINTENANCE MONOTHERAPY
     Route: 065
  9. PREDNISOLONE. [Suspect]
     Active Substance: PREDNISOLONE
     Indication: DIFFUSE LARGE B-CELL LYMPHOMA
     Dosage: ANOTHER COURSE OF MODIFIED R-CHOP IN 100 % DOSING
     Route: 065
  10. PREDNISOLONE. [Suspect]
     Active Substance: PREDNISOLONE
     Dosage: MODIFIED R-CHOP IN MONTHLY INTERVALS
     Route: 065
  11. VINCRISTINE [Suspect]
     Active Substance: VINCRISTINE
     Indication: DIFFUSE LARGE B-CELL LYMPHOMA
     Dosage: 4 COURSES OF MODIFIED R-CHOP IN 75 % DOSE REDUCTION
     Route: 065
  12. VINCRISTINE [Suspect]
     Active Substance: VINCRISTINE
     Dosage: 1,4 MG/M2, MODIFIED R-CHOP IN MONTHLY INTERVALS
     Route: 065
  13. ENDOXAN                            /00021101/ [Suspect]
     Active Substance: CYCLOPHOSPHAMIDE
     Dosage: 4 COURSES OF MODIFIED R-CHOP IN 75 % DOSE REDUCTION
     Route: 065
  14. RITUXIMAB. [Suspect]
     Active Substance: RITUXIMAB
     Dosage: ANOTHER COURSE OF MODIFIED R-CHOP IN 100 % DOSING
     Route: 065
  15. RITUXIMAB. [Suspect]
     Active Substance: RITUXIMAB
     Dosage: MODIFIED R-CHOP IN MONTHLY INTERVALS
     Route: 065

REACTIONS (6)
  - Leukopenia [Unknown]
  - Extravasation [Unknown]
  - Agitation [Unknown]
  - Dizziness [Unknown]
  - Headache [Unknown]
  - Thrombosis [Unknown]
